FAERS Safety Report 8022537-9 (Version None)
Quarter: 2012Q1

REPORT INFORMATION
  Report Type: 
  Country: None (occurrence: None)
  Receive Date: 20120104
  Receipt Date: 20120103
  Transmission Date: 20120608
  Serious: Yes (Death, Hospitalization)
  Sender: FDA-Public Use
  Company Number: US-GLAXOSMITHKLINE-A0931486A

PATIENT
  Age: 64 Year
  Sex: Male

DRUGS (11)
  1. VOTRIENT [Suspect]
     Indication: RENAL CELL CARCINOMA
     Dosage: 800MG PER DAY
     Route: 048
     Dates: start: 20110502
  2. LEVOTHYROXINE SODIUM [Concomitant]
  3. TOPROL-XL [Concomitant]
  4. ZOFRAN [Concomitant]
  5. MORPHINE SULFATE [Concomitant]
  6. LUNESTA [Concomitant]
  7. UNKNOWN [Concomitant]
  8. MIRTAZAPINE [Concomitant]
  9. DEXAMETHASONE [Concomitant]
  10. RISPERIDONE [Concomitant]
  11. CLONAZEPAM [Concomitant]

REACTIONS (5)
  - VOMITING [None]
  - LETHARGY [None]
  - GAIT DISTURBANCE [None]
  - URINARY TRACT INFECTION [None]
  - DISEASE PROGRESSION [None]
